FAERS Safety Report 9434477 (Version 4)
Quarter: 2013Q3

REPORT INFORMATION
  Report Type: Spontaneous
  Country: JP (occurrence: JP)
  Receive Date: 20130801
  Receipt Date: 20130905
  Transmission Date: 20140515
  Serious: Yes (Hospitalization)
  Sender: FDA-Public Use
  Company Number: JP-JNJFOC-20130717389

PATIENT
  Age: 62 Year
  Sex: Female
  Weight: 50 kg

DRUGS (15)
  1. SIMPONI [Suspect]
     Indication: RHEUMATOID ARTHRITIS
     Route: 058
     Dates: start: 20121030, end: 20121030
  2. SIMPONI [Suspect]
     Indication: RHEUMATOID ARTHRITIS
     Route: 058
     Dates: start: 20121002, end: 20121002
  3. SIMPONI [Suspect]
     Indication: RHEUMATOID ARTHRITIS
     Route: 058
     Dates: start: 20120807, end: 20120807
  4. SIMPONI [Suspect]
     Indication: RHEUMATOID ARTHRITIS
     Route: 058
     Dates: start: 20120710, end: 20120710
  5. SIMPONI [Suspect]
     Indication: RHEUMATOID ARTHRITIS
     Route: 058
     Dates: start: 20120612, end: 20120612
  6. SIMPONI [Suspect]
     Indication: RHEUMATOID ARTHRITIS
     Route: 058
     Dates: start: 20121127, end: 20121127
  7. SIMPONI [Suspect]
     Indication: RHEUMATOID ARTHRITIS
     Route: 058
     Dates: start: 20121225, end: 20121225
  8. SIMPONI [Suspect]
     Indication: RHEUMATOID ARTHRITIS
     Route: 058
     Dates: start: 20130122, end: 20130122
  9. SIMPONI [Suspect]
     Indication: RHEUMATOID ARTHRITIS
     Route: 058
     Dates: start: 20130219, end: 20130219
  10. SIMPONI [Suspect]
     Indication: RHEUMATOID ARTHRITIS
     Route: 058
     Dates: start: 20120904, end: 20120904
  11. METHOTREXATE [Suspect]
     Indication: LYMPHADENITIS
     Route: 048
     Dates: start: 20100420, end: 20130224
  12. FOSAMAC [Concomitant]
     Indication: LYMPHADENITIS
     Route: 048
     Dates: start: 20120904, end: 20130224
  13. LOXONIN [Concomitant]
     Indication: LYMPHADENITIS
     Route: 048
     Dates: start: 20120327, end: 20130224
  14. ZOSYN [Concomitant]
     Indication: LYMPHADENOPATHY
     Route: 041
     Dates: start: 20130316, end: 20130318
  15. GENINAX [Concomitant]
     Indication: TUBERCULOSIS
     Route: 048
     Dates: start: 20130413, end: 20130417

REACTIONS (4)
  - Cytomegalovirus infection [Recovering/Resolving]
  - Cholecystitis acute [Recovered/Resolved]
  - Tuberculosis [Recovering/Resolving]
  - Thyroiditis [Recovered/Resolved]
